FAERS Safety Report 10073823 (Version 1)
Quarter: 2014Q2

REPORT INFORMATION
  Report Type: Spontaneous
  Country: US (occurrence: US)
  Receive Date: 20140412
  Receipt Date: 20140412
  Transmission Date: 20141212
  Serious: No
  Sender: FDA-Public Use
  Company Number: US-B.I. PHARMACEUTICALS,INC./RIDGEFIELD-2014-BI-14177BP

PATIENT
  Age: 79 Year
  Sex: Female
  Weight: 72 kg

DRUGS (11)
  1. SPIRIVA [Suspect]
     Indication: CHRONIC OBSTRUCTIVE PULMONARY DISEASE
     Dosage: 18 MCG
     Route: 055
     Dates: start: 201402
  2. SPIRIVA [Suspect]
     Indication: BRONCHITIS CHRONIC
  3. SYMBICORT [Concomitant]
     Indication: ASTHMA
     Dosage: FORMULATION: INHALATION SPRAY DOSE PER APPLICATION: 80/4.5MCG AND DAILY DOSE: 160/9MCG
     Route: 055
  4. PROAIR [Concomitant]
     Indication: ASTHMA
     Dosage: FORMULATION: INHALATION SPRAY
     Route: 055
  5. FLUTICASONE [Concomitant]
     Indication: SINUS DISORDER
     Dosage: FORMULATION : NASAL SPRAY
     Route: 045
  6. MONTELUKAST [Concomitant]
     Indication: ASTHMA
     Dosage: 10 MG
     Route: 048
  7. LEVOTHYROXINE [Concomitant]
     Indication: HYPOTHYROIDISM
     Dosage: 0.88 MCG
     Route: 048
  8. LISINOPRIL/HCTZ [Concomitant]
     Indication: HYPERTENSION
     Dosage: DOSE PER APPLICATION: 20MG/25MG ;DAILY DOSE: 20MG/25MG
     Route: 048
  9. SOTALOL [Concomitant]
     Indication: ATRIAL FIBRILLATION
     Route: 048
  10. CLARITIN [Concomitant]
     Indication: SINUS DISORDER
     Route: 048
  11. FLUTICASONE PROPIONATE [Concomitant]
     Indication: ASTHMA
     Dosage: 100 MCG
     Route: 045

REACTIONS (2)
  - Burning sensation [Recovered/Resolved]
  - Product quality issue [Unknown]
